FAERS Safety Report 26208815 (Version 1)
Quarter: 2025Q4

REPORT INFORMATION
  Report Type: Spontaneous
  Country: US (occurrence: None)
  Receive Date: 20251226
  Receipt Date: 20251226
  Transmission Date: 20260117
  Serious: Yes (Death)
  Sender: FDA-CTU
  Company Number: None

PATIENT
  Age: 81 Year
  Sex: Male

DRUGS (3)
  1. ALCOHOL [Suspect]
     Active Substance: ALCOHOL
     Dosage: 300MG/2ML INJECT 2 PENS SUBCUTANEOUSLY ....  ...
     Route: 058
  2. ALCOHOL [Suspect]
     Active Substance: ALCOHOL
     Dosage: OTHER FREQUENCY : 1 PEN ON DAY 15;
     Route: 058
  3. ALCOHOL [Suspect]
     Active Substance: ALCOHOL
     Dosage: FREQUENCY : EVERY OTHER WEEK;
     Route: 058

REACTIONS (1)
  - Death [None]
